FAERS Safety Report 25223661 (Version 1)
Quarter: 2025Q2

REPORT INFORMATION
  Report Type: Spontaneous
  Country: US (occurrence: US)
  Receive Date: 20250422
  Receipt Date: 20250422
  Transmission Date: 20250717
  Serious: Yes (Other)
  Sender: EMD SERONO INC
  Company Number: US-Merck Healthcare KGaA-2025019349

PATIENT
  Age: 32 Year
  Sex: Female

DRUGS (2)
  1. MAVENCLAD [Suspect]
     Active Substance: CLADRIBINE
     Indication: Multiple sclerosis
     Dates: start: 20240403, end: 20240412
  2. MAVENCLAD [Suspect]
     Active Substance: CLADRIBINE

REACTIONS (2)
  - Fall [Unknown]
  - Ear injury [Unknown]
